FAERS Safety Report 24172465 (Version 1)
Quarter: 2024Q3

REPORT INFORMATION
  Report Type: Spontaneous
  Country: CN (occurrence: CN)
  Receive Date: 20240805
  Receipt Date: 20240805
  Transmission Date: 20241017
  Serious: Yes (Other)
  Sender: ORGANON
  Company Number: CN-ORGANON-O2408CHN000104

PATIENT
  Age: 25 Year
  Sex: Male

DRUGS (1)
  1. SINGULAIR [Suspect]
     Active Substance: MONTELUKAST SODIUM
     Indication: Respiratory tract inflammation
     Dosage: 10 MILLIGRAM, QD
     Route: 048
     Dates: start: 20240730, end: 20240731

REACTIONS (2)
  - Dermatitis allergic [Recovering/Resolving]
  - Product use in unapproved indication [Unknown]

NARRATIVE: CASE EVENT DATE: 20240731
